FAERS Safety Report 13749226 (Version 1)
Quarter: 2017Q3

REPORT INFORMATION
  Report Type: Spontaneous
  Country: US (occurrence: US)
  Receive Date: 20170713
  Receipt Date: 20170713
  Transmission Date: 20171127
  Serious: Yes (Disabling)
  Sender: FDA-Public Use
  Company Number: None

PATIENT
  Age: 69 Year
  Sex: Female
  Weight: 83.92 kg

DRUGS (15)
  1. SIMVASTATIN. [Concomitant]
     Active Substance: SIMVASTATIN
  2. BASAGLAR [Concomitant]
     Active Substance: INSULIN GLARGINE
  3. GLUCOPHAGE [Concomitant]
     Active Substance: METFORMIN HYDROCHLORIDE
  4. AMBIEN [Concomitant]
     Active Substance: ZOLPIDEM TARTRATE
  5. PROBIOTICS [Concomitant]
     Active Substance: PROBIOTICS NOS
  6. CREON [Suspect]
     Active Substance: PANCRELIPASE AMYLASE\PANCRELIPASE LIPASE\PANCRELIPASE PROTEASE
     Indication: HEPATIC CANCER
     Dosage: 24000 UNT  2 CAPS  BEFORE MEALS 3-4 X DAY MOUTH
     Route: 048
     Dates: end: 20170628
  7. LANREOTIDE [Concomitant]
     Active Substance: LANREOTIDE
  8. PLENDIL [Concomitant]
     Active Substance: FELODIPINE
  9. OMEGA 3 FISH OIL WITH D3 [Concomitant]
  10. ASA [Concomitant]
     Active Substance: ASPIRIN
  11. MAXZIDE [Concomitant]
     Active Substance: HYDROCHLOROTHIAZIDE\TRIAMTERENE
  12. CREON [Suspect]
     Active Substance: PANCRELIPASE AMYLASE\PANCRELIPASE LIPASE\PANCRELIPASE PROTEASE
     Indication: RADIOTHERAPY
     Dosage: 24000 UNT  2 CAPS  BEFORE MEALS 3-4 X DAY MOUTH
     Route: 048
     Dates: end: 20170628
  13. SYNTHROID [Concomitant]
     Active Substance: LEVOTHYROXINE SODIUM
  14. LISINOPRIL. [Concomitant]
     Active Substance: LISINOPRIL
  15. ALLOPURINOL. [Concomitant]
     Active Substance: ALLOPURINOL

REACTIONS (4)
  - Swelling [None]
  - Burning sensation [None]
  - Gout [None]
  - Pain in extremity [None]

NARRATIVE: CASE EVENT DATE: 20170628
